FAERS Safety Report 25369090 (Version 3)
Quarter: 2025Q3

REPORT INFORMATION
  Report Type: Spontaneous
  Country: JP (occurrence: JP)
  Receive Date: 20250528
  Receipt Date: 20250702
  Transmission Date: 20251021
  Serious: Yes (Other)
  Sender: SANOFI AVENTIS
  Company Number: JP-SA-2025SA151528

PATIENT
  Age: 76 Year
  Sex: Male

DRUGS (4)
  1. CLOPIDOGREL BISULFATE [Suspect]
     Active Substance: CLOPIDOGREL BISULFATE
     Dosage: 1 DF, QD
     Route: 048
  2. ASPIRIN [Suspect]
     Active Substance: ASPIRIN
  3. CILOSTAZOL [Suspect]
     Active Substance: CILOSTAZOL
  4. CILOSTAZOL [Suspect]
     Active Substance: CILOSTAZOL

REACTIONS (5)
  - Retinopathy [Recovering/Resolving]
  - Visual impairment [Recovering/Resolving]
  - Retinal haemorrhage [Recovering/Resolving]
  - Retinal exudates [Recovering/Resolving]
  - Acute macular neuroretinopathy [Recovering/Resolving]
